FAERS Safety Report 7775084-3 (Version None)
Quarter: 2011Q3

REPORT INFORMATION
  Report Type: 
  Country: None (occurrence: None)
  Receive Date: 20110923
  Receipt Date: 20110915
  Transmission Date: 20111222
  Serious: Yes (Other)
  Sender: FDA-Public Use
  Company Number: BR-BAXTER-2011BH017170

PATIENT
  Age: 10 Year
  Sex: Female
  Weight: 39 kg

DRUGS (9)
  1. CYCLOPHOSPHAMIDE [Suspect]
     Route: 042
     Dates: start: 20101018, end: 20110628
  2. AMITRIPTYLINE HCL [Concomitant]
     Indication: PRODUCT USED FOR UNKNOWN INDICATION
     Route: 048
     Dates: start: 20100908, end: 20101113
  3. ETOPOSIDE [Concomitant]
     Indication: PRODUCT USED FOR UNKNOWN INDICATION
     Route: 065
  4. DOXORUBICIN HCL [Concomitant]
     Indication: CHEMOTHERAPY
     Route: 042
     Dates: start: 20101018, end: 20110618
  5. IFOSFAMIDE [Concomitant]
     Indication: PRODUCT USED FOR UNKNOWN INDICATION
     Route: 065
  6. VINCRISTINE [Concomitant]
     Indication: CHEMOTHERAPY
     Route: 042
     Dates: start: 20101018, end: 20110618
  7. CYCLOPHOSPHAMIDE [Suspect]
     Indication: CHEMOTHERAPY
     Route: 042
     Dates: start: 20101018, end: 20110628
  8. MESNA [Concomitant]
     Indication: CHEMOTHERAPY
     Route: 042
     Dates: start: 20101018, end: 20110618
  9. TRIMETHOPRIM [Concomitant]
     Indication: PRODUCT USED FOR UNKNOWN INDICATION
     Route: 048
     Dates: start: 20100922, end: 20101113

REACTIONS (2)
  - HEADACHE [None]
  - EYE PAIN [None]
